FAERS Safety Report 6266506-8 (Version None)
Quarter: 2009Q3

REPORT INFORMATION
  Report Type: 
  Country: None (occurrence: None)
  Receive Date: 20090710
  Receipt Date: 20090625
  Transmission Date: 20100115
  Serious: Yes (Other)
  Sender: FDA-Public Use
  Company Number: DSA_33917_2009

PATIENT
  Sex: Female

DRUGS (1)
  1. DILTIAZEM [Suspect]
     Indication: DRUG USE FOR UNKNOWN INDICATION
     Dosage: (FREQENCY NOT PROVIDED)
     Dates: start: 20090501

REACTIONS (2)
  - ATRIAL FIBRILLATION [None]
  - HEADACHE [None]
